FAERS Safety Report 13736641 (Version 1)
Quarter: 2017Q3

REPORT INFORMATION
  Report Type: Spontaneous
  Country: US (occurrence: US)
  Receive Date: 20170710
  Receipt Date: 20170710
  Transmission Date: 20171127
  Serious: Yes (Other)
  Sender: FDA-Public Use
  Company Number: US-ALLERGAN-1712424US

PATIENT
  Age: 49 Year
  Sex: Female

DRUGS (7)
  1. VRAYLAR [Suspect]
     Active Substance: CARIPRAZINE
     Dosage: 1.5 MG, UNKNOWN
     Route: 048
     Dates: start: 201609, end: 201611
  2. EFFEXOR [Concomitant]
     Active Substance: VENLAFAXINE HYDROCHLORIDE
     Indication: ANXIETY
     Dosage: 75 MG, QD
     Route: 048
     Dates: start: 2006
  3. VRAYLAR [Suspect]
     Active Substance: CARIPRAZINE
     Indication: OBSESSIVE-COMPULSIVE DISORDER
     Dosage: 1.5 MG, QHS
     Route: 048
     Dates: start: 201703
  4. CLONAZEPAM. [Concomitant]
     Active Substance: CLONAZEPAM
     Indication: ANXIETY
     Dosage: UNK, PRN
     Route: 048
  5. TRAMADOL. [Concomitant]
     Active Substance: TRAMADOL
     Indication: FIBROMYALGIA
     Dosage: UNK, PRN
     Route: 048
  6. EFFEXOR [Concomitant]
     Active Substance: VENLAFAXINE HYDROCHLORIDE
     Indication: DEPRESSION
  7. VRAYLAR [Suspect]
     Active Substance: CARIPRAZINE
     Dosage: 3 MG, UNKNOWN
     Route: 048
     Dates: start: 201609, end: 201611

REACTIONS (7)
  - Hallucination, visual [Unknown]
  - Weight fluctuation [Unknown]
  - Drug dose omission [Unknown]
  - Off label use [Unknown]
  - Weight increased [Recovered/Resolved]
  - Suicidal ideation [Unknown]
  - Anxiety [Unknown]

NARRATIVE: CASE EVENT DATE: 201609
